FAERS Safety Report 5888221-2 (Version None)
Quarter: 2008Q3

REPORT INFORMATION
  Report Type: 
  Country: None (occurrence: None)
  Receive Date: 20080916
  Receipt Date: 20080904
  Transmission Date: 20090109
  Serious: Yes (Life-Threatening, Hospitalization, Disabling)
  Sender: FDA-Public Use
  Company Number: WAES 0804DEU00125

PATIENT
  Age: 48 Year
  Sex: Female

DRUGS (1)
  1. CAP VORINOSTAT [Suspect]
     Indication: MYCOSIS FUNGOIDES
     Dosage: 400 MG/DAILY PO
     Route: 048
     Dates: start: 20080321, end: 20080420

REACTIONS (25)
  - ARTHRALGIA [None]
  - BONE METABOLISM DISORDER [None]
  - BURSITIS [None]
  - CANDIDA SEPSIS [None]
  - CARDIOMEGALY [None]
  - CATHETER SEPSIS [None]
  - COMA [None]
  - CONDITION AGGRAVATED [None]
  - HEPATIC ENZYME INCREASED [None]
  - HERPES SIMPLEX [None]
  - HYPERCALCAEMIA [None]
  - HYPOCALCAEMIA [None]
  - LEUKOPENIA [None]
  - MYCOSIS FUNGOIDES [None]
  - ORAL CANDIDIASIS [None]
  - PLEURAL EFFUSION [None]
  - PNEUMONIA [None]
  - RENAL FAILURE [None]
  - SINUS TACHYCARDIA [None]
  - SPLENIC INFARCTION [None]
  - STAPHYLOCOCCAL SEPSIS [None]
  - STOMATITIS [None]
  - THROMBOCYTOPENIA [None]
  - VENTRICULAR EXTRASYSTOLES [None]
  - WEIGHT DECREASED [None]
